FAERS Safety Report 4957290-6 (Version None)
Quarter: 2006Q1

REPORT INFORMATION
  Report Type: 
  Country: None (occurrence: None)
  Receive Date: 20060323
  Receipt Date: 20060313
  Transmission Date: 20060701
  Serious: Yes (Hospitalization)
  Sender: FDA-Public Use
  Company Number: 222746

PATIENT
  Age: 52 Year
  Sex: Female

DRUGS (5)
  1. HERCEPTIN [Suspect]
     Indication: BREAST CANCER RECURRENT
     Dosage: 463 Q3W
     Dates: start: 20060208
  2. COLACE                (DOCUSATE SODIUM) [Concomitant]
  3. PROTONIX [Concomitant]
  4. DELTASONE [Concomitant]
  5. SENOKOT [Concomitant]

REACTIONS (5)
  - DYSPEPSIA [None]
  - EPISTAXIS [None]
  - IDIOPATHIC THROMBOCYTOPENIC PURPURA [None]
  - RECTAL HAEMORRHAGE [None]
  - SKIN HAEMORRHAGE [None]
